FAERS Safety Report 10332685 (Version 1)
Quarter: 2014Q3

REPORT INFORMATION
  Report Type: Spontaneous
  Country: US (occurrence: US)
  Receive Date: 20140722
  Receipt Date: 20140722
  Transmission Date: 20150326
  Serious: No
  Sender: FDA-Public Use
  Company Number: US-ASTRAZENECA-2014SE05868

PATIENT
  Age: 53 Year
  Sex: Female
  Weight: 72.6 kg

DRUGS (8)
  1. LITHIUM [Concomitant]
     Active Substance: LITHIUM CARBONATE
     Indication: MOOD SWINGS
     Route: 048
     Dates: start: 2003
  2. AMITRIPTYLLINE [Concomitant]
     Active Substance: AMITRIPTYLINE
     Indication: BIPOLAR DISORDER
     Dosage: UNKNOWN UNK
     Route: 048
  3. SEROQUEL [Suspect]
     Active Substance: QUETIAPINE FUMARATE
     Indication: BIPOLAR DISORDER
     Dosage: UNKNOWN QHS
     Route: 048
  4. SEROQUEL [Suspect]
     Active Substance: QUETIAPINE FUMARATE
     Indication: SLEEP DISORDER
     Dosage: UNKNOWN QHS
     Route: 048
  5. EFFEXOR [Concomitant]
     Active Substance: VENLAFAXINE HYDROCHLORIDE
     Indication: BIPOLAR DISORDER
     Dosage: UNKNOWN DAILY
     Route: 048
     Dates: start: 201401
  6. MORPHINE [Concomitant]
     Active Substance: MORPHINE
     Indication: PAIN
     Route: 048
     Dates: start: 1999
  7. NORCO [Concomitant]
     Active Substance: ACETAMINOPHEN\HYDROCODONE BITARTRATE
     Indication: BREAKTHROUGH PAIN
     Dosage: UNKNOWN 2 TABLETS PRN
     Route: 048
     Dates: start: 1999
  8. XANAX [Concomitant]
     Active Substance: ALPRAZOLAM
     Indication: ANXIETY
     Route: 048
     Dates: start: 2003

REACTIONS (5)
  - Off label use [Unknown]
  - Insomnia [Unknown]
  - Somnolence [Unknown]
  - Tachyphrenia [Unknown]
  - Bipolar disorder [Unknown]
